FAERS Safety Report 8250858-3 (Version None)
Quarter: 2012Q2

REPORT INFORMATION
  Report Type: 
  Country: None (occurrence: None)
  Receive Date: 20120402
  Receipt Date: 20120329
  Transmission Date: 20120825
  Serious: Yes (Other)
  Sender: FDA-Public Use
  Company Number: PHEH2012US006630

PATIENT
  Sex: Female
  Weight: 55.782 kg

DRUGS (1)
  1. GILENYA [Suspect]
     Indication: MULTIPLE SCLEROSIS
     Dosage: 0.5 MG, QD
     Route: 048
     Dates: start: 20110314

REACTIONS (4)
  - HEADACHE [None]
  - DIZZINESS [None]
  - DYSPNOEA [None]
  - CARDIOMEGALY [None]
